FAERS Safety Report 7388921-1 (Version None)
Quarter: 2011Q2

REPORT INFORMATION
  Report Type: 
  Country: None (occurrence: None)
  Receive Date: 20110401
  Receipt Date: 20110325
  Transmission Date: 20111010
  Serious: Yes (Other)
  Sender: FDA-Public Use
  Company Number: IN-US-EMD SERONO, INC.-7050035

PATIENT
  Age: 29 Year
  Sex: Female

DRUGS (2)
  1. RECOMBINANT HUMAN FOLLICLE-STIMULATING HORMONE (R-HFSH) [Suspect]
     Indication: OVULATION INDUCTION
  2. LEUPRIDE ACETATE [Suspect]
     Indication: PRODUCT USED FOR UNKNOWN INDICATION

REACTIONS (1)
  - ECTOPIC PREGNANCY [None]
